FAERS Safety Report 8533595-7 (Version None)
Quarter: 2012Q3

REPORT INFORMATION
  Report Type: 
  Country: None (occurrence: None)
  Receive Date: 20120724
  Receipt Date: 20120719
  Transmission Date: 20120928
  Serious: Yes (Hospitalization)
  Sender: FDA-Public Use
  Company Number: BE-JNJFOC-20120516528

PATIENT
  Sex: Male
  Weight: 65 kg

DRUGS (6)
  1. GOLIMUMAB [Suspect]
     Indication: JUVENILE ARTHRITIS
     Route: 058
     Dates: start: 20120418
  2. NAPROXEN [Concomitant]
     Indication: ARTHRALGIA
     Route: 048
     Dates: start: 20120509
  3. GOLIMUMAB [Suspect]
     Route: 058
     Dates: start: 20120711
  4. FOLIC ACID [Concomitant]
     Indication: PROPHYLAXIS
     Route: 048
     Dates: start: 20110331
  5. METHOTREXATE [Concomitant]
     Indication: JUVENILE ARTHRITIS
     Route: 048
     Dates: start: 20110330
  6. GOLIMUMAB [Suspect]
     Route: 058
     Dates: start: 20120320

REACTIONS (1)
  - APPENDICITIS [None]
